FAERS Safety Report 8277672-7 (Version None)
Quarter: 2012Q2

REPORT INFORMATION
  Report Type: 
  Country: None (occurrence: None)
  Receive Date: 20120412
  Receipt Date: 20120409
  Transmission Date: 20120825
  Serious: Yes (Hospitalization)
  Sender: FDA-Public Use
  Company Number: US-BRACCO-007824

PATIENT
  Sex: Female

DRUGS (2)
  1. ISOVUE-370 [Suspect]
     Indication: COMPUTERISED TOMOGRAM
     Route: 042
     Dates: start: 20120201, end: 20120201
  2. ISOVUE-370 [Suspect]
     Indication: ABDOMINAL PAIN
     Route: 042
     Dates: start: 20120201, end: 20120201

REACTIONS (1)
  - EXTRAVASATION [None]
